FAERS Safety Report 4635639-1 (Version None)
Quarter: 2005Q2

REPORT INFORMATION
  Report Type: 
  Country: None (occurrence: None)
  Receive Date: 20050413
  Receipt Date: 20050323
  Transmission Date: 20051028
  Serious: Yes (Death)
  Sender: FDA-Public Use
  Company Number: MK200504-0040-1

PATIENT
  Age: 59 Year
  Sex: Female

DRUGS (1)
  1. OPTIRAY 320 [Suspect]
     Indication: COMPUTERISED TOMOGRAM
     Dosage: 80-150 L, ONE TIME IV
     Route: 042
     Dates: start: 20050302, end: 20050302

REACTIONS (4)
  - ANAPHYLACTOID SHOCK [None]
  - CIRCULATORY COLLAPSE [None]
  - PULMONARY OEDEMA [None]
  - SECRETION DISCHARGE [None]
